FAERS Safety Report 8386158-0 (Version None)
Quarter: 2012Q2

REPORT INFORMATION
  Report Type: 
  Country: None (occurrence: None)
  Receive Date: 20120525
  Receipt Date: 20120511
  Transmission Date: 20120825
  Serious: Yes (Death, Congenital Anomaly)
  Sender: FDA-Public Use
  Company Number: US-RANBAXY-2011US-50102

PATIENT

DRUGS (6)
  1. ZIDOVUDINE [Suspect]
     Indication: MATERNAL EXPOSURE DURING PREGNANCY
     Dosage: 2.0 MG/DAY
     Route: 064
     Dates: start: 20110915, end: 20110915
  2. NORVIR [Suspect]
     Dosage: 100 MG/DAY
     Route: 064
     Dates: start: 20110511, end: 20111220
  3. NORVIR [Suspect]
     Indication: MATERNAL EXPOSURE DURING PREGNANCY
     Dosage: 200 MG/DAY
     Route: 064
     Dates: start: 20110428, end: 20110510
  4. COMBIVIR [Suspect]
     Indication: MATERNAL EXPOSURE DURING PREGNANCY
     Dosage: UNK
     Route: 064
     Dates: start: 20110421, end: 20110915
  5. KALETRA [Suspect]
     Indication: MATERNAL EXPOSURE DURING PREGNANCY
     Dosage: UNK
     Route: 064
     Dates: start: 20110421, end: 20110428
  6. PREZISTA [Suspect]
     Indication: MATERNAL EXPOSURE DURING PREGNANCY
     Dosage: 800 MG/DAY
     Route: 064
     Dates: start: 20110428, end: 20111220

REACTIONS (3)
  - PREMATURE BABY [None]
  - FOETAL GROWTH RESTRICTION [None]
  - FOETAL EXPOSURE DURING PREGNANCY [None]
